APPROVED DRUG PRODUCT: TOBRAMYCIN SULFATE
Active Ingredient: TOBRAMYCIN SULFATE
Strength: EQ 10MG BASE/ML
Dosage Form/Route: INJECTABLE;INJECTION
Application: A063128 | Product #001
Applicant: HIKMA PHARMACEUTICALS USA INC
Approved: Nov 27, 1991 | RLD: No | RS: No | Type: DISCN